FAERS Safety Report 11370491 (Version 2)
Quarter: 2015Q4

REPORT INFORMATION
  Report Type: Spontaneous
  Country: US (occurrence: US)
  Receive Date: 20150812
  Receipt Date: 20151030
  Transmission Date: 20160304
  Serious: Yes (Other)
  Sender: FDA-Public Use
  Company Number: US-PFIZER INC-2015262796

PATIENT
  Age: 67 Year
  Sex: Female

DRUGS (10)
  1. VENLAFAXINE [Concomitant]
     Active Substance: VENLAFAXINE HYDROCHLORIDE
     Indication: DEPRESSION
     Dosage: 150 MG, 1X/DAY (ONE DAILY)
     Dates: start: 2003
  2. BISALAX [Concomitant]
     Indication: GASTROINTESTINAL MOTILITY DISORDER
     Dosage: 5 MG, ALTERNATE DAY (ONE EVERY OTHER DAY)
     Dates: start: 2011
  3. IBANDRONATE [Concomitant]
     Active Substance: IBANDRONATE SODIUM
     Indication: OSTEOPOROSIS
     Dosage: 150 MG, MONTHLY (ONE PER MONTH)
     Dates: start: 2000
  4. CALTRATE [Concomitant]
     Active Substance: CALCIUM CARBONATE
     Indication: VITAMIN SUPPLEMENTATION
     Dosage: UNK, 1X/DAY (ONE DAILY)
     Dates: start: 2007
  5. POLY HIST FORTE [Concomitant]
     Active Substance: PHENYLEPHRINE HYDROCHLORIDE\PYRILAMINE MALEATE
     Indication: HYPERSENSITIVITY
     Dosage: UNK, 2X/DAY (TWO DAILY)
     Dates: start: 2011
  6. LEVOTHYROXINE. [Concomitant]
     Active Substance: LEVOTHYROXINE
     Indication: THYROID DISORDER
     Dosage: 75 ?G, 1X/DAY (ONE DAILY)
     Dates: start: 2005
  7. PROTEGRA [Concomitant]
     Indication: VITAMIN SUPPLEMENTATION
     Dosage: UNK, 1X/DAY (ONE DAILY)
     Dates: start: 2005
  8. LIPITOR [Suspect]
     Active Substance: ATORVASTATIN CALCIUM
     Indication: BLOOD CHOLESTEROL INCREASED
     Dosage: 10 MG, 1X/DAY (ONE AT NIGHT)
     Route: 048
     Dates: start: 2000
  9. PROAIR HFA [Concomitant]
     Active Substance: ALBUTEROL SULFATE
     Indication: ASTHMA
     Dosage: 90 ?G, (2/6 HOURS)
     Dates: start: 2000
  10. ADVAIR HFA [Concomitant]
     Active Substance: FLUTICASONE PROPIONATE\SALMETEROL XINAFOATE
     Indication: ASTHMA
     Dosage: 250/50, 2X/DAY (TWO TIMES A DAY )
     Dates: start: 2000

REACTIONS (1)
  - Type 2 diabetes mellitus [Not Recovered/Not Resolved]

NARRATIVE: CASE EVENT DATE: 2012
